FAERS Safety Report 18724256 (Version 1)
Quarter: 2021Q1

REPORT INFORMATION
  Report Type: Spontaneous
  Country: US (occurrence: US)
  Receive Date: 20210109
  Receipt Date: 20210109
  Transmission Date: 20210419
  Serious: Yes (Other)
  Sender: FDA-Public Use
  Company Number: None

PATIENT
  Age: 44 Year
  Sex: Female
  Weight: 74.25 kg

DRUGS (8)
  1. VITAMIN D [Concomitant]
     Active Substance: VITAMIN D NOS
  2. FISH OIL [Concomitant]
     Active Substance: FISH OIL
  3. SMARTY PANTS VITAMINS FOR WOMEN [Concomitant]
  4. ZOFRAN [Concomitant]
     Active Substance: ONDANSETRON HYDROCHLORIDE
  5. ELETRIPTAN HYDROBROMIDE. [Concomitant]
     Active Substance: ELETRIPTAN HYDROBROMIDE
  6. ELETRIPTAN HYDROBROMIDE TABLETS 40 MG [Suspect]
     Active Substance: ELETRIPTAN HYDROBROMIDE
     Indication: MIGRAINE
     Dosage: ?          QUANTITY:1 TABLET(S);?
     Route: 048
  7. FLUOXOTINE [Concomitant]
  8. WOMEN^S PROBIOTIC BY GARDEN OF LIFE [Concomitant]

REACTIONS (1)
  - Raynaud^s phenomenon [None]

NARRATIVE: CASE EVENT DATE: 20210106
